FAERS Safety Report 10183305 (Version 1)
Quarter: 2014Q2

REPORT INFORMATION
  Report Type: Spontaneous
  Country: FR (occurrence: FR)
  Receive Date: 20140520
  Receipt Date: 20140520
  Transmission Date: 20141212
  Serious: Yes (Hospitalization)
  Sender: FDA-Public Use
  Company Number: FR-SA-2014SA059314

PATIENT
  Age: 78 Year
  Sex: Female

DRUGS (8)
  1. PLAVIX [Suspect]
     Indication: PRODUCT USED FOR UNKNOWN INDICATION
     Route: 048
  2. ARESTAL [Concomitant]
     Route: 048
     Dates: end: 20140319
  3. VOGALENE [Concomitant]
     Route: 048
     Dates: end: 20140319
  4. CODEINE [Concomitant]
     Route: 048
     Dates: end: 20140319
  5. LANTUS [Concomitant]
  6. NOVORAPID [Concomitant]
  7. DOLIPRANE [Concomitant]
  8. PAROXETINE [Concomitant]

REACTIONS (1)
  - Wound [Recovered/Resolved]
